FAERS Safety Report 4403437-X (Version None)
Quarter: 2004Q3

REPORT INFORMATION
  Report Type: 
  Country: None (occurrence: None)
  Receive Date: 20040720
  Receipt Date: 20040713
  Transmission Date: 20050211
  Serious: Yes (Other)
  Sender: FDA-Public Use
  Company Number: HQWYE102614JUL04

PATIENT
  Age: 50 Year
  Sex: Female

DRUGS (3)
  1. PREMPRO [Suspect]
     Indication: HORMONE REPLACEMENT THERAPY
     Dosage: UNKNOWN, ORAL
     Route: 048
     Dates: start: 19950101, end: 20020701
  2. PREMARIN [Suspect]
     Indication: HORMONE REPLACEMENT THERAPY
     Dosage: UNKNOWN
     Dates: start: 19950101, end: 20020101
  3. PROVERA [Suspect]
     Dosage: UNKNOWN
     Dates: start: 19950101, end: 20020101

REACTIONS (2)
  - CERVIX CARCINOMA [None]
  - UTERINE CANCER [None]
